FAERS Safety Report 7969620-1 (Version None)
Quarter: 2011Q4

REPORT INFORMATION
  Report Type: 
  Country: None (occurrence: None)
  Receive Date: 20111212
  Receipt Date: 20110606
  Transmission Date: 20120403
  Serious: Yes (Hospitalization, Other)
  Sender: FDA-Public Use
  Company Number: GB-PFIZER INC-2011300478

PATIENT
  Sex: Male
  Weight: 123.8 kg

DRUGS (5)
  1. SILDENAFIL CITRATE [Suspect]
     Indication: PULMONARY HYPERTENSION
     Dosage: 75 ML, 3X/DAY
  2. TREPROSTINIL [Suspect]
     Indication: PULMONARY ARTERIAL HYPERTENSION
     Dosage: UNK
  3. WARFARIN [Concomitant]
     Indication: BLOOD VISCOSITY INCREASED
  4. BOSENTAN [Suspect]
     Indication: PULMONARY ARTERIAL HYPERTENSION
     Dosage: 2 DF, UNK
  5. OXYGEN [Concomitant]

REACTIONS (9)
  - WEIGHT DECREASED [None]
  - GASTRIC HAEMORRHAGE [None]
  - POOR QUALITY SLEEP [None]
  - DRUG EFFECT DECREASED [None]
  - INCORRECT DOSE ADMINISTERED [None]
  - PAIN [None]
  - DIARRHOEA [None]
  - OEDEMA [None]
  - SLEEP APNOEA SYNDROME [None]
